FAERS Safety Report 7598260-1 (Version None)
Quarter: 2011Q3

REPORT INFORMATION
  Report Type: 
  Country: None (occurrence: None)
  Receive Date: 20110708
  Receipt Date: 20110705
  Transmission Date: 20111222
  Serious: Yes (Hospitalization, Other)
  Sender: FDA-Public Use
  Company Number: GR-PFIZER INC-2011149595

PATIENT
  Age: 34 Year
  Sex: Male

DRUGS (6)
  1. SERTRALINE HYDROCHLORIDE [Interacting]
     Indication: MAJOR DEPRESSION
     Dosage: 4 TABLETS OF SERTRALINE (100 MG EACH) EVERY 12 HOURS
  2. CHLORPROMAZINE [Interacting]
     Dosage: 100MG TOTAL
     Route: 030
  3. CANNABIS [Suspect]
  4. HALOPERIDOL [Interacting]
     Dosage: 20MG TOTAL
     Route: 030
  5. BIPERIDEN [Suspect]
     Dosage: 20MG TOTAL
     Route: 030
  6. ALCOHOL [Suspect]

REACTIONS (5)
  - DRUG INTERACTION [None]
  - BLOOD BILIRUBIN INCREASED [None]
  - ASPARTATE AMINOTRANSFERASE INCREASED [None]
  - PSYCHOTIC DISORDER [None]
  - DELIRIUM [None]
